FAERS Safety Report 4994326-0 (Version None)
Quarter: 2006Q1

REPORT INFORMATION
  Report Type: 
  Country: None (occurrence: None)
  Receive Date: 20060314
  Receipt Date: 20050919
  Transmission Date: 20060701
  Serious: Yes (Other)
  Sender: FDA-Public Use
  Company Number: 200512728BCC

PATIENT
  Age: 55 Year
  Sex: Female
  Weight: 83.9154 kg

DRUGS (3)
  1. ALEVE (CAPLET) [Suspect]
     Indication: ANALGESIC THERAPY
     Dosage: 440 MG, TOTAL DAILY, ORAL
     Route: 048
     Dates: start: 20050625
  2. TRESIDON [Concomitant]
  3. GLUCOTROL [Concomitant]

REACTIONS (3)
  - ANGIONEUROTIC OEDEMA [None]
  - NAIL DISCOLOURATION [None]
  - THROAT TIGHTNESS [None]
